FAERS Safety Report 9520840 (Version 2)
Quarter: 2014Q1

REPORT INFORMATION
  Report Type: Spontaneous
  Country: US (occurrence: None)
  Receive Date: 20130305
  Receipt Date: 20140306
  Transmission Date: 20141002
  Serious: Yes (Hospitalization)
  Sender: FDA-Public Use
  Company Number: 163-21880-12031847

PATIENT
  Age: 65 Year
  Sex: Male
  Weight: 136 kg

DRUGS (2)
  1. REVLIMID (LENALIDOMIDE) (15 MILLIGRAM, CAPSULES) [Suspect]
     Indication: PLASMA CELL MYELOMA
     Dosage: 15 MG, 1 IN 1 D, PO
     Route: 048
     Dates: start: 201005, end: 201012
  2. COUMADIN (WARFARIN SODIUM) [Concomitant]

REACTIONS (6)
  - Sepsis [None]
  - Full blood count decreased [None]
  - Malaise [None]
  - Coagulopathy [None]
  - Sinus headache [None]
  - Nasopharyngitis [None]
